FAERS Safety Report 20724288 (Version 1)
Quarter: 2022Q2

REPORT INFORMATION
  Report Type: Spontaneous
  Country: AT (occurrence: AT)
  Receive Date: 20220419
  Receipt Date: 20220419
  Transmission Date: 20220720
  Serious: Yes (Other)
  Sender: FDA-Public Use
  Company Number: AT-ELI_LILLY_AND_COMPANY-AT202204003789

PATIENT
  Age: 34 Year
  Sex: Male
  Weight: 120 kg

DRUGS (1)
  1. TALTZ [Suspect]
     Active Substance: IXEKIZUMAB
     Indication: Psoriatic arthropathy
     Dosage: UNK UNK, UNKNOWN
     Route: 065

REACTIONS (3)
  - Pulmonary embolism [Unknown]
  - Peripheral swelling [Unknown]
  - Sports injury [Unknown]
